FAERS Safety Report 22613856 (Version 1)
Quarter: 2023Q2

REPORT INFORMATION
  Report Type: Spontaneous
  Country: HU (occurrence: None)
  Receive Date: 20230619
  Receipt Date: 20230619
  Transmission Date: 20230721
  Serious: Yes (Other)
  Sender: FDA-Public Use
  Company Number: HU-ROCHE-3368254

PATIENT
  Age: 68 Year

DRUGS (2)
  1. ALECENSA [Suspect]
     Active Substance: ALECTINIB HYDROCHLORIDE
     Indication: Product used for unknown indication
     Route: 065
     Dates: start: 20190110, end: 202109
  2. XALKORI [Suspect]
     Active Substance: CRIZOTINIB
     Indication: Product used for unknown indication
     Route: 065
     Dates: start: 201704, end: 20190104

REACTIONS (3)
  - Metastases to central nervous system [Unknown]
  - Adenocarcinoma metastatic [Unknown]
  - Disease progression [Unknown]

NARRATIVE: CASE EVENT DATE: 20210901
